FAERS Safety Report 15687423 (Version 1)
Quarter: 2018Q4

REPORT INFORMATION
  Report Type: Spontaneous
  Country: US (occurrence: US)
  Receive Date: 20181205
  Receipt Date: 20181205
  Transmission Date: 20190205
  Serious: Yes (Disabling)
  Sender: FDA-Public Use
  Company Number: US-009507513-1811USA011677

PATIENT
  Age: 71 Year
  Sex: Female

DRUGS (3)
  1. BELSOMRA [Suspect]
     Active Substance: SUVOREXANT
     Indication: INSOMNIA
     Dosage: CUT 20 MG TABLETS ^DOWN TO A 5 MG^^
     Route: 048
  2. BELSOMRA [Suspect]
     Active Substance: SUVOREXANT
     Dosage: CUT 20 MG TABLETS ^DOWN TO A 10 MG^^
     Route: 048
  3. BELSOMRA [Suspect]
     Active Substance: SUVOREXANT
     Dosage: 20 MILLIGRAM
     Route: 048

REACTIONS (3)
  - Wrong technique in product usage process [Unknown]
  - Nightmare [Not Recovered/Not Resolved]
  - Drug ineffective [Not Recovered/Not Resolved]
